FAERS Safety Report 13940205 (Version 2)
Quarter: 2018Q4

REPORT INFORMATION
  Report Type: Report from Study
  Country: MX (occurrence: MX)
  Receive Date: 20170906
  Receipt Date: 20181025
  Transmission Date: 20190204
  Serious: Yes (Hospitalization)
  Sender: FDA-Public Use
  Company Number: MX-TEVA-801954ISR

PATIENT
  Age: 33 Year
  Sex: Female
  Weight: 67.5 kg

DRUGS (7)
  1. TOFACITINIB/PLACEBO [Suspect]
     Active Substance: TOFACITINIB
     Indication: RHEUMATOID ARTHRITIS
     Route: 048
     Dates: start: 20150831, end: 20151221
  2. ADALIMUMAB [Suspect]
     Active Substance: ADALIMUMAB
     Indication: RHEUMATOID ARTHRITIS
     Dosage: 10 MILLIGRAM DAILY;
     Route: 048
     Dates: start: 20150831, end: 20151225
  3. FOLIC ACID. [Concomitant]
     Active Substance: FOLIC ACID
     Dates: start: 2008
  4. DICLOFENAC [Concomitant]
     Active Substance: DICLOFENAC
     Dates: start: 2008
  5. METHOTREXATE. [Suspect]
     Active Substance: METHOTREXATE
     Indication: RHEUMATOID ARTHRITIS
     Route: 048
     Dates: start: 20150831, end: 20151221
  6. PREDNISONE. [Concomitant]
     Active Substance: PREDNISONE
     Dates: start: 2008, end: 20151230
  7. OMEPRAZOLE. [Concomitant]
     Active Substance: OMEPRAZOLE
     Dates: start: 2010

REACTIONS (1)
  - Meningitis tuberculous [Recovering/Resolving]

NARRATIVE: CASE EVENT DATE: 20151225
